FAERS Safety Report 4931158-3 (Version None)
Quarter: 2006Q1

REPORT INFORMATION
  Report Type: 
  Country: None (occurrence: None)
  Receive Date: 20060302
  Receipt Date: 20051007
  Transmission Date: 20060701
  Serious: Yes (Hospitalization, Disabling)
  Sender: FDA-Public Use
  Company Number: US-MERCK-0510USA06359

PATIENT
  Age: 82 Year
  Sex: Female
  Weight: 73 kg

DRUGS (13)
  1. VIOXX [Suspect]
     Indication: OSTEOARTHRITIS
     Route: 048
     Dates: start: 20010927, end: 20030103
  2. VIOXX [Suspect]
     Route: 048
     Dates: start: 20010927, end: 20030103
  3. VIOXX [Suspect]
     Route: 048
     Dates: start: 20031210, end: 20040101
  4. VIOXX [Suspect]
     Route: 048
     Dates: start: 20031210, end: 20040101
  5. PRILOSEC [Concomitant]
     Route: 065
  6. DIDRONEL [Concomitant]
     Route: 065
  7. CALCIUM (UNSPECIFIED) [Concomitant]
     Route: 065
  8. VITAMIN D (UNSPECIFIED) [Concomitant]
     Route: 065
  9. TOPROL-XL [Concomitant]
     Route: 065
  10. LASIX [Concomitant]
     Route: 065
     Dates: start: 20030219, end: 20050920
  11. ASPIRIN [Concomitant]
     Route: 065
  12. ALTACE [Concomitant]
     Route: 065
     Dates: start: 20011228, end: 20050920
  13. TYLENOL (CAPLET) [Concomitant]
     Route: 065

REACTIONS (11)
  - ANAEMIA [None]
  - CARDIAC DISORDER [None]
  - CARDIAC FAILURE CONGESTIVE [None]
  - CORONARY ARTERY DISEASE [None]
  - HAEMATOMA [None]
  - MYOCARDIAL INFARCTION [None]
  - OEDEMA PERIPHERAL [None]
  - PLEURAL EFFUSION [None]
  - RENAL CYST [None]
  - RETROPERITONEAL HAEMORRHAGE [None]
  - VENTRICULAR HYPERTROPHY [None]
